FAERS Safety Report 19767513 (Version 1)
Quarter: 2021Q3

REPORT INFORMATION
  Report Type: Not Available
  Country: CO (occurrence: CO)
  Receive Date: 20210830
  Receipt Date: 20210830
  Transmission Date: 20211014
  Serious: Yes (Hospitalization, Other)
  Sender: FDA-Public Use
  Company Number: CO-AKORN-170658

PATIENT
  Age: 45 Year
  Sex: Female

DRUGS (1)
  1. FENTANYL CITRATE INJECTION [Suspect]
     Active Substance: FENTANYL CITRATE

REACTIONS (3)
  - Thrombocytopenia [Unknown]
  - Lung transplant [Unknown]
  - Haemothorax [Unknown]
